FAERS Safety Report 10189564 (Version 1)
Quarter: 2014Q2

REPORT INFORMATION
  Report Type: Report from Study
  Country: BR (occurrence: BR)
  Receive Date: 20140522
  Receipt Date: 20140522
  Transmission Date: 20141212
  Serious: Yes (Other)
  Sender: FDA-Public Use
  Company Number: PHHY2014BR058671

PATIENT
  Sex: Female
  Weight: 63 kg

DRUGS (7)
  1. ONBREZ [Suspect]
     Indication: DYSPNOEA
     Dosage: 150 UG, DAILY
     Route: 055
  2. ONBREZ [Suspect]
     Indication: EMPHYSEMA
  3. LUGOL [Concomitant]
     Indication: THYROID DISORDER
     Dosage: 30 ML, UNK
  4. PURAN T4 [Concomitant]
     Indication: THYROID DISORDER
     Dosage: 75 UG, UNK
  5. PURAN T4 [Concomitant]
     Dosage: 88 UG, UNK
  6. PURAN T4 [Concomitant]
     Dosage: 100 UG, UNK
  7. PANTOPRAZOLE [Concomitant]
     Indication: GASTROOESOPHAGEAL REFLUX DISEASE
     Dosage: 40 MG, WHEN EXPERIENCED STOMACH CRISIS AND REFLUX

REACTIONS (4)
  - Osteoporosis [Not Recovered/Not Resolved]
  - Dyspnoea [Not Recovered/Not Resolved]
  - Fatigue [Not Recovered/Not Resolved]
  - Influenza [Not Recovered/Not Resolved]
